FAERS Safety Report 7912872-4 (Version None)
Quarter: 2011Q4

REPORT INFORMATION
  Report Type: 
  Country: None (occurrence: None)
  Receive Date: 20111114
  Receipt Date: 20111103
  Transmission Date: 20120403
  Serious: Yes (Other)
  Sender: FDA-Public Use
  Company Number: US-ASTRAZENECA-2011SE66709

PATIENT
  Age: 55 Year
  Sex: Female
  Weight: 83.9 kg

DRUGS (3)
  1. SEROQUEL XR [Suspect]
     Indication: BIPOLAR DISORDER
     Route: 048
  2. SEROQUEL XR [Suspect]
     Route: 048
     Dates: start: 20050101
  3. ZOLOFT [Concomitant]
     Indication: ANXIETY
     Route: 048
     Dates: start: 20000101

REACTIONS (4)
  - THROMBOSIS [None]
  - DRUG DOSE OMISSION [None]
  - MENTAL DISORDER [None]
  - INCORRECT DOSE ADMINISTERED [None]
